FAERS Safety Report 10029367 (Version 1)
Quarter: 2014Q1

REPORT INFORMATION
  Report Type: Spontaneous
  Country: US (occurrence: US)
  Receive Date: 20140322
  Receipt Date: 20140322
  Transmission Date: 20141002
  Serious: Yes (Other)
  Sender: FDA-Public Use
  Company Number: PHEH2014US005099

PATIENT
  Sex: Female

DRUGS (16)
  1. RECLAST [Suspect]
     Indication: OSTEOPOROSIS
  2. RECLAST [Suspect]
     Indication: OSTEOPENIA
  3. RECLAST [Suspect]
     Indication: OSTEOPOROSIS PROPHYLAXIS
  4. RECLAST [Suspect]
     Indication: PROPHYLAXIS
  5. FOSAMAX [Suspect]
     Indication: OSTEOPOROSIS
  6. FOSAMAX [Suspect]
     Indication: OSTEOPENIA
  7. FOSAMAX [Suspect]
     Indication: OSTEOPOROSIS PROPHYLAXIS
  8. FOSAMAX [Suspect]
     Indication: PROPHYLAXIS
  9. ACTONEL [Suspect]
     Indication: OSTEOPOROSIS
  10. ACTONEL [Suspect]
     Indication: OSTEOPENIA
  11. ACTONEL [Suspect]
     Indication: OSTEOPOROSIS PROPHYLAXIS
  12. ACTONEL [Suspect]
     Indication: PROPHYLAXIS
  13. BONIVA [Suspect]
     Indication: OSTEOPOROSIS
  14. BONIVA [Suspect]
     Indication: OSTEOPENIA
  15. BONIVA [Suspect]
     Indication: OSTEOPOROSIS PROPHYLAXIS
  16. BONIVA [Suspect]
     Indication: PROPHYLAXIS

REACTIONS (10)
  - Low turnover osteopathy [Unknown]
  - Injury [Unknown]
  - Osteoporosis [Unknown]
  - Bone disorder [Unknown]
  - Stress fracture [Unknown]
  - Femur fracture [Unknown]
  - Pain [Unknown]
  - Anxiety [Unknown]
  - Anhedonia [Unknown]
  - Emotional distress [Unknown]
